FAERS Safety Report 23494927 (Version 2)
Quarter: 2024Q1

REPORT INFORMATION
  Report Type: Spontaneous
  Country: DE (occurrence: None)
  Receive Date: 20240207
  Receipt Date: 20240325
  Transmission Date: 20240409
  Serious: Yes (Other)
  Sender: FDA-Public Use
  Company Number: 2024A028099

PATIENT
  Age: 64 Year
  Sex: Female

DRUGS (1)
  1. DURVALUMAB [Suspect]
     Active Substance: DURVALUMAB
     Route: 042
     Dates: start: 202209

REACTIONS (5)
  - Cardiac failure [Unknown]
  - Immune-mediated hypothyroidism [Unknown]
  - Leukoencephalopathy [Unknown]
  - Hypothyroidism [Unknown]
  - General physical health deterioration [Unknown]
